FAERS Safety Report 26121465 (Version 1)
Quarter: 2025Q4

REPORT INFORMATION
  Report Type: Spontaneous
  Country: US (occurrence: US)
  Receive Date: 20251204
  Receipt Date: 20251204
  Transmission Date: 20260117
  Serious: Yes (Hospitalization)
  Sender: MYLAN
  Company Number: US-MYLANLABS-2025M1102867

PATIENT
  Age: 81 Year
  Sex: Male

DRUGS (8)
  1. PREDNISONE [Suspect]
     Active Substance: PREDNISONE
     Indication: Myasthenia gravis
     Dosage: 25 MILLIGRAM, QD
  2. PREDNISONE [Suspect]
     Active Substance: PREDNISONE
     Dosage: 25 MILLIGRAM, QD
  3. PREDNISONE [Suspect]
     Active Substance: PREDNISONE
     Dosage: 25 MILLIGRAM, QD
     Route: 065
  4. PREDNISONE [Suspect]
     Active Substance: PREDNISONE
     Dosage: 25 MILLIGRAM, QD
     Route: 065
  5. PREDNISONE [Suspect]
     Active Substance: PREDNISONE
     Dosage: UNK, DOSE TAPERED
  6. PREDNISONE [Suspect]
     Active Substance: PREDNISONE
     Dosage: UNK, DOSE TAPERED
  7. PREDNISONE [Suspect]
     Active Substance: PREDNISONE
     Dosage: UNK, DOSE TAPERED
     Route: 065
  8. PREDNISONE [Suspect]
     Active Substance: PREDNISONE
     Dosage: UNK, DOSE TAPERED
     Route: 065

REACTIONS (2)
  - Diabetic ketoacidosis [Unknown]
  - Pseudomonal bacteraemia [Unknown]
